FAERS Safety Report 26203215 (Version 1)
Quarter: 2025Q4

REPORT INFORMATION
  Report Type: Spontaneous
  Country: US (occurrence: US)
  Receive Date: 20251226
  Receipt Date: 20251226
  Transmission Date: 20260118
  Serious: No
  Sender: CELLTRION
  Company Number: US-CELLTRION INC.-2025US037132

PATIENT

DRUGS (5)
  1. RITUXIMAB [Suspect]
     Active Substance: RITUXIMAB
     Indication: Waldenstrom^s macroglobulinaemia
     Dosage: 375 MG/M2 (SIX CYCLES OF DRUG THERAPY)
     Dates: start: 202311
  2. BENDAMUSTINE [Suspect]
     Active Substance: BENDAMUSTINE
     Indication: Waldenstrom^s macroglobulinaemia
     Dosage: 90 MG/M2, CYCLIC (SIX CYCLES OF DRUG THERAPY)
     Dates: start: 202311
  3. IMMUNE GLOBULIN NOS [Suspect]
     Active Substance: IMMUNE GLOBULIN NOS
     Indication: Waldenstrom^s macroglobulinaemia
     Dosage: INDUCTION PHASE CONSISTED OF IVIG AT 35 G DAILY FOR FOUR CONSECUTIVE DAYS
     Route: 042
     Dates: start: 202301
  4. IMMUNE GLOBULIN NOS [Suspect]
     Active Substance: IMMUNE GLOBULIN NOS
     Dosage: MAINTENANCE THERAPY THREE WEEKS LATER AT 35 G DAILY FOR TWO DAYS
     Route: 042
  5. IMMUNE GLOBULIN NOS [Suspect]
     Active Substance: IMMUNE GLOBULIN NOS
     Dosage: MAINTENANCE DOSE WAS REPEATED EVERY THREE WEEKS, CONTINUING FOR A TOTAL DURATION OF THREE MONTHS OVE
     Route: 042

REACTIONS (2)
  - Intentional product use issue [Unknown]
  - Therapeutic product effect decreased [Unknown]
